FAERS Safety Report 5194023-5 (Version None)
Quarter: 2006Q4

REPORT INFORMATION
  Report Type: 
  Country: None (occurrence: None)
  Receive Date: 20061222
  Receipt Date: 20061208
  Transmission Date: 20070319
  Serious: Yes (Hospitalization)
  Sender: FDA-Public Use
  Company Number: E2020-00788-SPO-US

PATIENT
  Age: 51 Year
  Sex: Male
  Weight: 139 kg

DRUGS (7)
  1. ARICEPT [Suspect]
     Dosage: 5 MG, 1 IN 1 D, ORAL ; 1 MG DAILY ; 2 MG TWICE DAILY
     Route: 048
     Dates: start: 20061202, end: 20061203
  2. ARICEPT [Suspect]
     Dosage: 5 MG, 1 IN 1 D, ORAL ; 1 MG DAILY ; 2 MG TWICE DAILY
     Route: 048
     Dates: start: 20061130
  3. ARICEPT [Suspect]
     Dosage: 5 MG, 1 IN 1 D, ORAL ; 1 MG DAILY ; 2 MG TWICE DAILY
     Route: 048
     Dates: start: 20061204
  4. CHANTIX [Suspect]
     Indication: SMOKING CESSATION THERAPY
     Dosage: 0.5 MG ONCE DAILY
     Dates: start: 20061130, end: 20061201
  5. BUPROPION HCL [Suspect]
     Indication: SMOKING CESSATION THERAPY
     Dosage: 300 MG, 2 IN 1 D
     Dates: start: 20061203
  6. RISPERDAL [Suspect]
     Dates: start: 20061203
  7. DIGOXIN [Concomitant]

REACTIONS (3)
  - CHRONIC OBSTRUCTIVE PULMONARY DISEASE [None]
  - CONDITION AGGRAVATED [None]
  - CONVULSION [None]
